FAERS Safety Report 5490056-X (Version None)
Quarter: 2007Q4

REPORT INFORMATION
  Report Type: 
  Country: None (occurrence: None)
  Receive Date: 20071018
  Receipt Date: 20071008
  Transmission Date: 20080405
  Serious: Yes (Other)
  Sender: FDA-Public Use
  Company Number: US-ELI_LILLY_AND_COMPANY-US200710001884

PATIENT
  Sex: Male

DRUGS (3)
  1. CYMBALTA [Suspect]
     Indication: DEPRESSION
     Dosage: 60 MG, EACH MORNING
     Dates: start: 20070901
  2. CYMBALTA [Suspect]
     Dosage: 30 MG, EACH EVENING
     Dates: start: 20070901
  3. PROZAC [Suspect]
     Indication: DEPRESSION
     Dosage: 160 MG, DAILY (1/D)

REACTIONS (3)
  - DRUG INEFFECTIVE [None]
  - OVERDOSE [None]
  - SUPRAVENTRICULAR EXTRASYSTOLES [None]
